FAERS Safety Report 5034695-9 (Version None)
Quarter: 2006Q2

REPORT INFORMATION
  Report Type: 
  Country: None (occurrence: None)
  Receive Date: 20060621
  Receipt Date: 20060606
  Transmission Date: 20061013
  Serious: Yes (Hospitalization)
  Sender: FDA-Public Use
  Company Number: 11299

PATIENT
  Age: 62 Year
  Sex: Female

DRUGS (16)
  1. LEUCOVORIN CALCIUM [Suspect]
     Indication: COLORECTAL CANCER METASTATIC
     Dosage: 640 MG/KG PER_CYCLE IV
     Route: 042
     Dates: start: 20050308
  2. LEUCOVORIN CALCIUM [Suspect]
     Indication: COLORECTAL CANCER METASTATIC
     Dosage: 400 MG/M2 OTH IV
     Route: 042
     Dates: start: 20050906, end: 20050906
  3. FLUOROURACIL [Suspect]
     Indication: COLORECTAL CANCER METASTATIC
     Dosage: 3712 MG/KG PER_CYCLE IV
     Route: 042
     Dates: start: 20050308
  4. FLUOROURACIL [Suspect]
     Indication: COLORECTAL CANCER METASTATIC
     Dosage: 2000 MG/M2 OTH IV
     Route: 042
     Dates: start: 20050906, end: 20050906
  5. OXALIPLATIN [Suspect]
     Indication: COLORECTAL CANCER METASTATIC
     Dosage: 104 MG/KG PER_CYCLE IV
     Route: 023
     Dates: start: 20050308
  6. OXALIPLATIN [Suspect]
     Indication: COLORECTAL CANCER METASTATIC
     Dosage: 50 MG/M2 OTH IV
     Route: 042
     Dates: start: 20050906, end: 20050906
  7. ERBITUX [Suspect]
     Indication: COLORECTAL CANCER METASTATIC
     Dosage: 250 MG/M2 WEEKLY IV
     Route: 042
     Dates: start: 20051012, end: 20051012
  8. ERBITUX [Suspect]
     Indication: COLORECTAL CANCER METASTATIC
     Dosage: 400 MG WEEKLY
     Dates: start: 20050308, end: 20050419
  9. LOMOTIL [Concomitant]
  10. OXYCONTIN [Concomitant]
  11. PREMARIN [Concomitant]
  12. LEVOXYL [Concomitant]
  13. LIPITOR [Concomitant]
  14. CALTRATE [Concomitant]
  15. MULTI-VITAMIN [Concomitant]
  16. POTASSIUM [Concomitant]

REACTIONS (5)
  - ABDOMINAL PAIN [None]
  - DEHYDRATION [None]
  - DIARRHOEA [None]
  - NAUSEA [None]
  - VOMITING [None]
